FAERS Safety Report 5819636-6 (Version None)
Quarter: 2008Q3

REPORT INFORMATION
  Report Type: 
  Country: None (occurrence: None)
  Receive Date: 20080723
  Receipt Date: 20080716
  Transmission Date: 20090109
  Serious: Yes (Hospitalization)
  Sender: FDA-Public Use
  Company Number: FR-BOEHRINGER INGELHEIM GMBH, GERMANY-2008-FF-00011FF

PATIENT
  Sex: Male

DRUGS (12)
  1. PERSANTINE [Suspect]
     Route: 048
     Dates: start: 20071205
  2. PREVISCAN [Suspect]
     Indication: THROMBOSIS PROPHYLAXIS
     Route: 048
     Dates: start: 20071204, end: 20071204
  3. PREVISCAN [Suspect]
     Route: 048
     Dates: start: 20071209, end: 20071210
  4. PREVISCAN [Suspect]
     Route: 048
     Dates: start: 20071211, end: 20071211
  5. PREVISCAN [Suspect]
     Route: 048
     Dates: start: 20071212, end: 20071213
  6. ALLOPURINOL [Concomitant]
     Route: 048
     Dates: start: 20071204
  7. ZOCOR [Concomitant]
     Route: 048
     Dates: start: 20071205
  8. CLAMOXYL [Concomitant]
     Dosage: 1 TO 3 G DAILY
     Route: 048
     Dates: start: 20071201, end: 20071204
  9. ZOLPIDEM TARTRATE [Concomitant]
     Route: 048
     Dates: start: 20071201, end: 20071205
  10. MEPRONIZINE [Concomitant]
     Route: 048
     Dates: start: 20071205
  11. IRBESARTAN [Concomitant]
     Route: 048
     Dates: start: 20071202
  12. LASIX [Concomitant]
     Route: 048
     Dates: start: 20071202

REACTIONS (3)
  - EPISTAXIS [None]
  - HAEMARTHROSIS [None]
  - INTERNATIONAL NORMALISED RATIO INCREASED [None]
